FAERS Safety Report 22336517 (Version 3)
Quarter: 2025Q1

REPORT INFORMATION
  Report Type: Spontaneous
  Country: US (occurrence: US)
  Receive Date: 20230518
  Receipt Date: 20250128
  Transmission Date: 20250408
  Serious: No
  Sender: LUPIN
  Company Number: US-LUPIN PHARMACEUTICALS INC.-2023-03685

PATIENT

DRUGS (1)
  1. ALBUTEROL SULFATE [Suspect]
     Active Substance: ALBUTEROL SULFATE
     Indication: Lung disorder
     Dosage: UNK, TID (2 PUFFS 3 TIMES A DAY)
     Dates: start: 20230420, end: 20230505

REACTIONS (4)
  - Chest discomfort [Unknown]
  - Drug dose omission by device [Unknown]
  - Device delivery system issue [Unknown]
  - Product use in unapproved indication [Unknown]
